FAERS Safety Report 9177924 (Version 1)
Quarter: 2013Q1

REPORT INFORMATION
  Report Type: Report from Study
  Country: US (occurrence: US)
  Receive Date: 20130321
  Receipt Date: 20130321
  Transmission Date: 20140127
  Serious: Yes (Hospitalization, Other)
  Sender: FDA-Public Use
  Company Number: US-VERTEX PHARMACEUTICALS INC.-2013-003885

PATIENT
  Sex: Male

DRUGS (2)
  1. VX-770 [Suspect]
     Indication: CYSTIC FIBROSIS
     Dosage: 150 MG, BID
     Dates: start: 20120302, end: 201301
  2. VX-770 [Suspect]
     Dosage: 150 MG, BID
     Route: 048
     Dates: start: 20130215

REACTIONS (4)
  - Pancreatitis [Unknown]
  - Sinus operation [Unknown]
  - Decreased appetite [Unknown]
  - Abdominal pain [Unknown]
